FAERS Safety Report 10290240 (Version 2)
Quarter: 2014Q3

REPORT INFORMATION
  Report Type: Spontaneous
  Country: JP (occurrence: JP)
  Receive Date: 20140710
  Receipt Date: 20140725
  Transmission Date: 20150326
  Serious: Yes (Other)
  Sender: FDA-Public Use
  Company Number: JP-EISAI INC-E3810-07246-SPO-JP

PATIENT
  Age: 67 Year
  Sex: Female

DRUGS (3)
  1. RABECURE [Suspect]
     Active Substance: RABEPRAZOLE SODIUM
     Indication: HELICOBACTER INFECTION
     Route: 048
     Dates: start: 20140523, end: 20140529
  2. AMOXICILLIN HYDRATE [Suspect]
     Active Substance: AMOXICILLIN
     Indication: HELICOBACTER INFECTION
     Route: 048
     Dates: start: 20140523, end: 20140529
  3. CLARITHROMYCIN. [Suspect]
     Active Substance: CLARITHROMYCIN
     Indication: HELICOBACTER INFECTION
     Route: 048
     Dates: start: 20140523, end: 20140529

REACTIONS (2)
  - Drug eruption [Recovering/Resolving]
  - Tongue discolouration [Recovering/Resolving]

NARRATIVE: CASE EVENT DATE: 20140530
